FAERS Safety Report 11603734 (Version 2)
Quarter: 2016Q2

REPORT INFORMATION
  Report Type: Spontaneous
  Country: US (occurrence: US)
  Receive Date: 20151007
  Receipt Date: 20160414
  Transmission Date: 20160815
  Serious: Yes (Other)
  Sender: FDA-Public Use
  Company Number: US-AUROBINDO-AUR-APL-2015-08804

PATIENT
  Age: 36 Day
  Sex: Male

DRUGS (1)
  1. METRONIDAZOLE. [Suspect]
     Active Substance: METRONIDAZOLE
     Indication: BACTERIAL VAGINOSIS
     Route: 064

REACTIONS (10)
  - Hypothermia neonatal [Recovered/Resolved]
  - Asthenia [Recovered/Resolved]
  - Foetal exposure during pregnancy [Recovered/Resolved]
  - Bradycardia neonatal [Recovered/Resolved]
  - Failure to thrive [Recovered/Resolved]
  - Nuclear magnetic resonance imaging brain abnormal [Recovered/Resolved]
  - White matter lesion [Recovered/Resolved]
  - Toxicity to various agents [Recovered/Resolved]
  - Hypotonia neonatal [Recovered/Resolved]
  - Decreased activity [Recovered/Resolved]
